FAERS Safety Report 8124674-7 (Version None)
Quarter: 2012Q1

REPORT INFORMATION
  Report Type: 
  Country: None (occurrence: None)
  Receive Date: 20120209
  Receipt Date: 20120209
  Transmission Date: 20120608
  Serious: Yes (Other)
  Sender: FDA-Public Use
  Company Number: None

PATIENT
  Age: 44 Year
  Sex: Female
  Weight: 74.842 kg

DRUGS (3)
  1. CYMBALTA [Suspect]
     Indication: ANXIETY
     Dosage: 60.0 MG
     Route: 048
     Dates: start: 20120103, end: 20120208
  2. CYMBALTA [Suspect]
     Indication: DEPRESSION
     Dosage: 60.0 MG
     Route: 048
     Dates: start: 20120103, end: 20120208
  3. KLONOPIN [Concomitant]

REACTIONS (6)
  - STOMATITIS [None]
  - MYALGIA [None]
  - FATIGUE [None]
  - MIDDLE INSOMNIA [None]
  - NAUSEA [None]
  - TREMOR [None]
